FAERS Safety Report 7065228-3 (Version None)
Quarter: 2010Q4

REPORT INFORMATION
  Report Type: 
  Country: None (occurrence: None)
  Receive Date: 20101022
  Receipt Date: 20101022
  Transmission Date: 20110411
  Serious: Yes (Hospitalization)
  Sender: FDA-Public Use
  Company Number: None

PATIENT
  Sex: Female

DRUGS (10)
  1. NEPAFENAC UNKNOWN ALCON (NOT RELATED PER PRINCIPAL INVESTIGATOR) [Suspect]
     Indication: DIABETIC RETINAL OEDEMA
     Dosage: 1 GTT TID OPH
     Route: 047
     Dates: start: 20100119, end: 20100420
  2. NEPAFENAC UNKNOWN ALCON (NOT RELATED PER PRINCIPAL INVESTIGATOR) [Suspect]
     Indication: DIABETIC RETINAL OEDEMA
     Dosage: 1 GTT TID OPH
     Route: 047
     Dates: start: 20100519, end: 20100819
  3. PRED FORTE [Concomitant]
  4. VIGAMOX [Concomitant]
  5. INSULIN [Concomitant]
  6. SIMVASTATIN [Concomitant]
  7. LISINOPRIL [Concomitant]
  8. ALENDRONATE SODIUM [Concomitant]
  9. URSODIOL [Concomitant]
  10. CENTRUM SILVER [Concomitant]

REACTIONS (1)
  - CHOLECYSTITIS [None]
